FAERS Safety Report 4683807-5 (Version None)
Quarter: 2005Q2

REPORT INFORMATION
  Report Type: 
  Country: None (occurrence: None)
  Receive Date: 20050602
  Receipt Date: 20050406
  Transmission Date: 20051028
  Serious: No
  Sender: FDA-Public Use
  Company Number: USA050495046

PATIENT
  Age: 53 Year
  Sex: Female

DRUGS (11)
  1. CYMBALTA [Suspect]
     Indication: DEPRESSION
     Dosage: 60 MG AT BEDTIME
  2. INSULIN GLARGINE [Concomitant]
  3. VITAMINS [Concomitant]
  4. POTASSIUM CHLORIDE [Concomitant]
  5. LOSARTAN POTASSIUM [Concomitant]
  6. CALTRATE [Concomitant]
  7. GALENIC /FEXOFENADINE HCL/PSEUDOEPHEDRINE/ [Concomitant]
  8. ATORVASTATIN CALCIUM [Concomitant]
  9. GLYBURIDE AND METFORMIN HCL [Concomitant]
  10. FUROSEMIDE [Concomitant]
  11. BISOPROLOL W/HYDROCHLOROTHIAZIDE [Concomitant]

REACTIONS (2)
  - DRY MOUTH [None]
  - POLYDIPSIA [None]
